FAERS Safety Report 8505182-8 (Version None)
Quarter: 2012Q3

REPORT INFORMATION
  Report Type: 
  Country: None (occurrence: None)
  Receive Date: 20120712
  Receipt Date: 20120706
  Transmission Date: 20120928
  Serious: Yes (Other)
  Sender: FDA-Public Use
  Company Number: FR-PFIZER INC-2012153089

PATIENT
  Age: 53 Year
  Sex: Female
  Weight: 72 kg

DRUGS (2)
  1. INNOHEP [Concomitant]
     Indication: PULMONARY EMBOLISM
     Dosage: 1X/DAY
  2. CRIZOTINIB [Suspect]
     Indication: BRONCHIAL CARCINOMA
     Dosage: 250 MG, 2X/DAY
     Route: 048

REACTIONS (1)
  - CYTOLYTIC HEPATITIS [None]
